FAERS Safety Report 6043661-6 (Version None)
Quarter: 2009Q1

REPORT INFORMATION
  Report Type: 
  Country: None (occurrence: None)
  Receive Date: 20090115
  Receipt Date: 20090108
  Transmission Date: 20090719
  Serious: Yes (Hospitalization)
  Sender: FDA-Public Use
  Company Number: WAES 0812USA04287

PATIENT
  Age: 70 Year
  Sex: Female

DRUGS (3)
  1. FOSAMAX [Suspect]
     Indication: OSTEOPOROSIS
     Dosage: 35 MG/WKY, PO
     Route: 048
     Dates: start: 20070227, end: 20070227
  2. ASPIRIN [Concomitant]
  3. NORVASC [Concomitant]

REACTIONS (1)
  - GASTROENTERITIS [None]
